FAERS Safety Report 7004686-7 (Version None)
Quarter: 2010Q3

REPORT INFORMATION
  Report Type: 
  Country: None (occurrence: None)
  Receive Date: 20100921
  Receipt Date: 20100906
  Transmission Date: 20110219
  Serious: Yes (Other)
  Sender: FDA-Public Use
  Company Number: PHHY2010HU61316

PATIENT
  Sex: Female

DRUGS (4)
  1. ACLASTA/ZOLEDRONATE T29581+A++OS [Suspect]
     Dosage: 5 MG
     Dates: start: 20100503
  2. VITAMIN D3 [Concomitant]
     Dosage: 1000 NE 1X 1
     Dates: start: 20100504
  3. CITROCALCIUM [Concomitant]
     Dosage: 2 DF
     Dates: start: 20100504
  4. MELOX [Concomitant]
     Dosage: 15 MG 1 X 1
     Dates: start: 20100426, end: 20100526

REACTIONS (6)
  - ABSCESS ORAL [None]
  - CARBUNCLE [None]
  - CELLULITIS [None]
  - DENTAL OPERATION [None]
  - SUBCUTANEOUS ABSCESS [None]
  - SWELLING FACE [None]
